FAERS Safety Report 14825191 (Version 2)
Quarter: 2018Q2

REPORT INFORMATION
  Report Type: Spontaneous
  Country: PL (occurrence: PL)
  Receive Date: 20180430
  Receipt Date: 20180522
  Transmission Date: 20180711
  Serious: Yes (Hospitalization, Disabling, Other)
  Sender: FDA-Public Use
  Company Number: PL-ROCHE-2112010

PATIENT
  Age: 51 Year
  Sex: Female
  Weight: 54 kg

DRUGS (7)
  1. TAXOTERE [Concomitant]
     Active Substance: DOCETAXEL
     Indication: BREAST CANCER
     Dosage: 6X
     Route: 065
  2. TRASTUZUMAB. [Suspect]
     Active Substance: TRASTUZUMAB
     Indication: BREAST CANCER
     Route: 065
     Dates: start: 20131031, end: 20141030
  3. CYCLOPHOSPHAMIDE. [Concomitant]
     Active Substance: CYCLOPHOSPHAMIDE
     Indication: BREAST CANCER
     Dosage: 6X
     Route: 065
  4. PERTUZUMAB. [Suspect]
     Active Substance: PERTUZUMAB
     Indication: BREAST CANCER
     Route: 065
     Dates: start: 20170608
  5. DOCETAXEL. [Suspect]
     Active Substance: DOCETAXEL
     Indication: BREAST CANCER
     Route: 065
     Dates: start: 20170608
  6. TRASTUZUMAB. [Suspect]
     Active Substance: TRASTUZUMAB
     Route: 065
     Dates: start: 20170608
  7. TAMOXIFEN [Concomitant]
     Active Substance: TAMOXIFEN
     Indication: BREAST CANCER
     Dosage: /DAY
     Route: 065
     Dates: start: 20150618, end: 20151027

REACTIONS (25)
  - Adrenal adenoma [Unknown]
  - Cortisol increased [Unknown]
  - Hyperkalaemia [Unknown]
  - Metastases to liver [Unknown]
  - Tachycardia [Unknown]
  - Blood corticotrophin decreased [Unknown]
  - Primary adrenal insufficiency [Unknown]
  - Neutropenia [Recovering/Resolving]
  - Hepatic lesion [Unknown]
  - Skin discolouration [Unknown]
  - Febrile neutropenia [Recovering/Resolving]
  - Upper respiratory tract infection [Recovering/Resolving]
  - Weight decreased [Unknown]
  - Malnutrition [Unknown]
  - Hypotension [Unknown]
  - Hyponatraemia [Unknown]
  - Nail disorder [Recovering/Resolving]
  - General physical health deterioration [Unknown]
  - Acute kidney injury [Unknown]
  - Balance disorder [Unknown]
  - Leukopenia [Recovering/Resolving]
  - Asthenia [Unknown]
  - Blood creatinine increased [Unknown]
  - Hyperuricaemia [Unknown]
  - Dehydration [Unknown]

NARRATIVE: CASE EVENT DATE: 201604
